FAERS Safety Report 7063534-X (Version None)
Quarter: 2010Q4

REPORT INFORMATION
  Report Type: 
  Country: None (occurrence: None)
  Receive Date: 20101026
  Receipt Date: 20100513
  Transmission Date: 20110411
  Serious: No
  Sender: FDA-Public Use
  Company Number: US-ABBOTT-10P-163-0645540-00

PATIENT
  Sex: Female
  Weight: 44.492 kg

DRUGS (3)
  1. LUPRON DEPOT [Suspect]
     Indication: ENDOMETRIOSIS
     Dosage: UNSURE OF STRENGTH
     Route: 050
     Dates: start: 20100201
  2. IBUPROFEN [Concomitant]
     Indication: ABDOMINAL PAIN LOWER
     Dosage: AS NEEDED
     Route: 048
  3. IBUPROFEN [Concomitant]
     Indication: ENDOMETRIOSIS

REACTIONS (1)
  - ABDOMINAL PAIN LOWER [None]
